FAERS Safety Report 7494929-8 (Version None)
Quarter: 2011Q2

REPORT INFORMATION
  Report Type: 
  Country: None (occurrence: None)
  Receive Date: 20110520
  Receipt Date: 20110513
  Transmission Date: 20111010
  Serious: Yes (Hospitalization, Other)
  Sender: FDA-Public Use
  Company Number: US-CEPHALON-2011002384

PATIENT
  Sex: Female
  Weight: 114 kg

DRUGS (3)
  1. NUVIGIL [Suspect]
     Indication: SLEEP APNOEA SYNDROME
     Route: 048
     Dates: start: 20091001, end: 20100801
  2. SYNTHROID [Concomitant]
     Dates: end: 20100201
  3. ABILIFY [Concomitant]
     Dates: start: 20060101

REACTIONS (7)
  - AMNESIA [None]
  - HALLUCINATION, AUDITORY [None]
  - WEIGHT DECREASED [None]
  - AGGRESSION [None]
  - THERAPEUTIC RESPONSE UNEXPECTED [None]
  - PSYCHIATRIC SYMPTOM [None]
  - ABNORMAL BEHAVIOUR [None]
